FAERS Safety Report 16269415 (Version 3)
Quarter: 2019Q3

REPORT INFORMATION
  Report Type: Spontaneous
  Country: BR (occurrence: BR)
  Receive Date: 20190503
  Receipt Date: 20190927
  Transmission Date: 20191004
  Serious: Yes (Hospitalization, Other)
  Sender: FDA-Public Use
  Company Number: BR-GLAXOSMITHKLINE-BR2019GSK077625

PATIENT
  Sex: Male
  Weight: 70 kg

DRUGS (1)
  1. NUCALA [Suspect]
     Active Substance: MEPOLIZUMAB
     Indication: ASTHMA
     Dosage: 100 MG, Z, MONTHLY
     Dates: start: 20190326

REACTIONS (5)
  - Asthmatic crisis [Unknown]
  - Fatigue [Unknown]
  - Dyspnoea [Unknown]
  - Nasal operation [Unknown]
  - Wheezing [Unknown]
